FAERS Safety Report 5797611-8 (Version None)
Quarter: 2008Q2

REPORT INFORMATION
  Report Type: 
  Country: None (occurrence: None)
  Receive Date: 20080630
  Receipt Date: 20080612
  Transmission Date: 20081010
  Serious: Yes (Other)
  Sender: FDA-Public Use
  Company Number: ALA_000703_2008

PATIENT
  Sex: Female

DRUGS (1)
  1. REGLAN [Suspect]
     Indication: NAUSEA
     Dosage: (DF)
     Dates: start: 20051129, end: 20051202

REACTIONS (3)
  - EXTRAPYRAMIDAL DISORDER [None]
  - NERVOUS SYSTEM DISORDER [None]
  - OFF LABEL USE [None]
